FAERS Safety Report 12203636 (Version 1)
Quarter: 2016Q1

REPORT INFORMATION
  Report Type: Spontaneous
  Country: US (occurrence: None)
  Receive Date: 20160322
  Receipt Date: 20160322
  Transmission Date: 20160526
  Serious: Yes (Disabling)
  Sender: FDA-Public Use
  Company Number: None

PATIENT
  Age: 82 Year
  Sex: Male
  Weight: 73.48 kg

DRUGS (7)
  1. AMLODIPINE [Concomitant]
     Active Substance: AMLODIPINE BESYLATE
  2. PRENAT-FECBN-FEBISG-FA-OMEGA, (ASPIRIN LOW DOSE 81MG, CALCIUM CARBONATE 500MG, CYANOCOBALAMIN 1000MCG/ML INJECTION SOLUTION, MULTIVITAMIN/MINERALS PO) [Concomitant]
  3. GLUCOSAMINE-CHONDROITIN [Concomitant]
     Active Substance: CHONDROITIN SULFATE (BOVINE)\GLUCOSAMINE SULFATE
  4. OMEPRAZOLE. [Concomitant]
     Active Substance: OMEPRAZOLE
  5. BICALUTAMIDE. [Concomitant]
     Active Substance: BICALUTAMIDE
  6. LOSARTAN-HYDROCHLOROTHIAZIDE [Concomitant]
     Active Substance: HYDROCHLOROTHIAZIDE\LOSARTAN
  7. XGEVA [Suspect]
     Active Substance: DENOSUMAB
     Indication: BONE DISORDER
     Dosage: INTO THE MUSCLE
     Route: 030
     Dates: start: 20151112, end: 20160207

REACTIONS (2)
  - Muscle spasms [None]
  - Muscle atrophy [None]

NARRATIVE: CASE EVENT DATE: 20160112
